FAERS Safety Report 5720883-2 (Version None)
Quarter: 2008Q2

REPORT INFORMATION
  Report Type: 
  Country: None (occurrence: None)
  Receive Date: 20080425
  Receipt Date: 20080425
  Transmission Date: 20081010
  Serious: Yes (Other)
  Sender: FDA-Public Use
  Company Number: None

PATIENT
  Age: 54 Year
  Sex: Male
  Weight: 72.5755 kg

DRUGS (1)
  1. CIPROFLOXACIN [Suspect]
     Indication: PROSTATITIS
     Dosage: 500 MG TWICE DAILY PO
     Route: 048
     Dates: start: 20080402, end: 20080405

REACTIONS (9)
  - DYSPNOEA [None]
  - FEELING HOT [None]
  - HEADACHE [None]
  - HEART RATE IRREGULAR [None]
  - INSOMNIA [None]
  - NO THERAPEUTIC RESPONSE [None]
  - PRURITUS GENERALISED [None]
  - RASH ERYTHEMATOUS [None]
  - SKIN HAEMORRHAGE [None]
